FAERS Safety Report 9440177 (Version 1)
Quarter: 2013Q3

REPORT INFORMATION
  Report Type: Report from Study
  Country: BR (occurrence: BR)
  Receive Date: 20130805
  Receipt Date: 20130805
  Transmission Date: 20140515
  Serious: Yes (Other)
  Sender: FDA-Public Use
  Company Number: PHHY2013BR046790

PATIENT
  Sex: Female
  Weight: 79 kg

DRUGS (3)
  1. DIOVAN [Suspect]
     Indication: HYPERTENSION
     Dosage: 80 MG, BID
     Route: 048
     Dates: start: 201305
  2. ATENOLOL [Suspect]
     Indication: BLOOD PRESSURE ABNORMAL
     Dosage: 25 MG, BID
     Dates: start: 201306
  3. ENALAPRIL [Suspect]
     Dosage: 10 MG, BID
     Dates: start: 201306

REACTIONS (11)
  - Stroke in evolution [Unknown]
  - Blood pressure increased [Recovering/Resolving]
  - Labyrinthitis [Recovering/Resolving]
  - Malaise [Recovering/Resolving]
  - Speech disorder [Unknown]
  - Depression [Recovering/Resolving]
  - Local swelling [Unknown]
  - Joint swelling [Unknown]
  - Blood pressure fluctuation [Recovering/Resolving]
  - Dizziness [Recovering/Resolving]
  - Blood pressure decreased [Not Recovered/Not Resolved]
